FAERS Safety Report 9184467 (Version 1)
Quarter: 2013Q1

REPORT INFORMATION
  Report Type: Spontaneous
  Country: TW (occurrence: TW)
  Receive Date: 20130322
  Receipt Date: 20130322
  Transmission Date: 20140127
  Serious: Yes (Death)
  Sender: FDA-Public Use
  Company Number: TW-ROCHE-1204850

PATIENT
  Age: 55 Year
  Sex: Female

DRUGS (4)
  1. ROCEPHIN [Suspect]
     Indication: SEPTIC SHOCK
     Route: 065
     Dates: start: 200805
  2. METRONIDAZOLE [Suspect]
     Indication: SEPTIC SHOCK
     Route: 065
     Dates: start: 200805
  3. METHOTREXATE [Concomitant]
     Indication: DERMATOMYOSITIS
     Route: 065
  4. FOLIC ACID [Concomitant]
     Indication: DERMATOMYOSITIS
     Route: 065

REACTIONS (2)
  - Intestinal perforation [Fatal]
  - Septic shock [Fatal]
